FAERS Safety Report 6598849-2 (Version None)
Quarter: 2010Q1

REPORT INFORMATION
  Report Type: 
  Country: None (occurrence: None)
  Receive Date: 20100224
  Receipt Date: 20100215
  Transmission Date: 20100710
  Serious: Yes (Death)
  Sender: FDA-Public Use
  Company Number: JP-SANOFI-AVENTIS-2010SA008686

PATIENT
  Age: 79 Year
  Sex: Male

DRUGS (9)
  1. PLAVIX [Suspect]
     Route: 048
     Dates: start: 20070908, end: 20080123
  2. BLOPRESS [Concomitant]
     Indication: HYPERTENSION
     Route: 048
     Dates: end: 20080123
  3. TENORMIN [Concomitant]
     Indication: HYPERTENSION
     Route: 048
     Dates: end: 20080123
  4. GLIMICRON [Concomitant]
     Route: 048
     Dates: end: 20080123
  5. MADOPAR [Concomitant]
     Route: 048
     Dates: end: 20080123
  6. DOPS [Concomitant]
     Route: 048
     Dates: end: 20080123
  7. OPALMON [Concomitant]
     Route: 048
     Dates: end: 20080123
  8. METHYCOBAL [Concomitant]
     Route: 048
     Dates: end: 20080123
  9. PRAMIPEXOLE DIHYDROCHLORIDE [Concomitant]
     Route: 048
     Dates: end: 20080123

REACTIONS (1)
  - PNEUMONIA ASPIRATION [None]
